FAERS Safety Report 6356323-2 (Version None)
Quarter: 2009Q3

REPORT INFORMATION
  Report Type: 
  Country: None (occurrence: None)
  Receive Date: 20090915
  Receipt Date: 20090908
  Transmission Date: 20100115
  Serious: Yes (Hospitalization)
  Sender: FDA-Public Use
  Company Number: US-AVENTIS-200918081US

PATIENT
  Age: 70 Year
  Sex: Male

DRUGS (3)
  1. LANTUS [Suspect]
     Indication: TYPE 2 DIABETES MELLITUS
     Dosage: DOSE: UNK
     Route: 058
  2. NPH INSULIN [Concomitant]
     Dosage: DOSE: BEFORE AND AFTER MEALS
  3. REGULAR INSULIN [Concomitant]
     Dosage: DOSE: BEFORE AND AFTER MEALS

REACTIONS (1)
  - CORONARY ARTERY BYPASS [None]
